FAERS Safety Report 24048246 (Version 1)
Quarter: 2024Q3

REPORT INFORMATION
  Report Type: Spontaneous
  Country: US (occurrence: None)
  Receive Date: 20240704
  Receipt Date: 20240704
  Transmission Date: 20241017
  Serious: No
  Sender: ASTRAZENECA
  Company Number: 2024A145951

PATIENT

DRUGS (2)
  1. CALQUENCE [Suspect]
     Active Substance: ACALABRUTINIB
     Route: 048
  2. QUETIAPINE [Suspect]
     Active Substance: QUETIAPINE
     Route: 048

REACTIONS (7)
  - Investigation abnormal [Unknown]
  - Autoscopy [Unknown]
  - Palpitations [Unknown]
  - Muscle fatigue [Unknown]
  - Chest pain [Unknown]
  - Diarrhoea [Unknown]
  - Product dose omission issue [Unknown]
